FAERS Safety Report 20027198 (Version 1)
Quarter: 2021Q4

REPORT INFORMATION
  Report Type: Spontaneous
  Country: US (occurrence: US)
  Receive Date: 20211103
  Receipt Date: 20211103
  Transmission Date: 20220303
  Serious: Yes (Other)
  Sender: FDA-Public Use
  Company Number: US-CELGENE-USA-20211008185

PATIENT
  Age: 69 Year
  Sex: Male
  Weight: 111 kg

DRUGS (2)
  1. ABRAXANE [Suspect]
     Active Substance: PACLITAXEL
     Indication: Pancreatic carcinoma
     Dosage: 240 MILLIGRAM
     Route: 041
     Dates: start: 20210922
  2. ABRAXANE [Suspect]
     Active Substance: PACLITAXEL
     Dosage: 180 MILLIGRAM
     Route: 041

REACTIONS (1)
  - Neuropathy peripheral [Unknown]

NARRATIVE: CASE EVENT DATE: 20211027
